FAERS Safety Report 6692416-8 (Version None)
Quarter: 2010Q2

REPORT INFORMATION
  Report Type: 
  Country: None (occurrence: None)
  Receive Date: 20100422
  Receipt Date: 20100414
  Transmission Date: 20101027
  Serious: Yes (Hospitalization)
  Sender: FDA-Public Use
  Company Number: GXKR2010ES03597

PATIENT
  Age: 41 Year

DRUGS (2)
  1. LORAZEPAM [Suspect]
     Dosage: TWO EMPTY STRIPS OF LORAZEPAM (BESIDES THE PATIENT'S BODY)
  2. BRONCHODILATORS [Concomitant]
     Indication: ASTHMA

REACTIONS (9)
  - BLISTER [None]
  - COMA [None]
  - CONFUSIONAL STATE [None]
  - ERYTHEMA [None]
  - HYPERHIDROSIS [None]
  - INTENTIONAL OVERDOSE [None]
  - OEDEMA [None]
  - SUICIDE ATTEMPT [None]
  - TACHYCARDIA [None]
